FAERS Safety Report 17572264 (Version 1)
Quarter: 2020Q1

REPORT INFORMATION
  Report Type: Spontaneous
  Country: US (occurrence: US)
  Receive Date: 20200317
  Receipt Date: 20200317
  Transmission Date: 20200409
  Serious: Yes (Other)
  Sender: FDA-Public Use
  Company Number: None

PATIENT
  Age: 67 Year
  Sex: Female
  Weight: 58.97 kg

DRUGS (16)
  1. EMGALITY [Concomitant]
     Active Substance: GALCANEZUMAB-GNLM
  2. COQ10 [Concomitant]
     Active Substance: UBIDECARENONE
  3. TYLENOL [Concomitant]
     Active Substance: ACETAMINOPHEN
  4. VITAMIN D3 [Concomitant]
     Active Substance: CHOLECALCIFEROL
  5. CITRACEL [Concomitant]
  6. DIGESTIVE ENZYMES [Concomitant]
     Active Substance: UNSPECIFIED INGREDIENT
  7. ROSUVASTIN [Concomitant]
     Active Substance: ROSUVASTATIN
  8. MONTELUKAST [Concomitant]
     Active Substance: MONTELUKAST SODIUM
  9. VITAMIN C [Concomitant]
     Active Substance: ASCORBIC ACID
  10. NARATRIPTAN [Concomitant]
     Active Substance: NARATRIPTAN HYDROCHLORIDE
  11. VIVELLE-DOT [Concomitant]
     Active Substance: ESTRADIOL
  12. FISH OIL [Concomitant]
     Active Substance: FISH OIL
  13. PROGESTERONE 100MG [Suspect]
     Active Substance: PROGESTERONE
     Indication: MIGRAINE
     Dosage: ?          QUANTITY:\UCI. OR MEALCAL UBVJUB I;OTHER FREQUENCY:ONCE P.O. HS;?
     Route: 048
     Dates: start: 20200301, end: 20200305
  14. MELATONIN [Concomitant]
     Active Substance: MELATONIN
  15. VITAMIN B12 SL [Concomitant]
  16. GLUCOSAMINE CHONDROITIN [Concomitant]
     Active Substance: CHONDROITIN SULFATE (BOVINE)\GLUCOSAMINE HYDROCHLORIDE

REACTIONS (1)
  - Nausea [None]

NARRATIVE: CASE EVENT DATE: 20200303
